FAERS Safety Report 6192616-X (Version None)
Quarter: 2009Q2

REPORT INFORMATION
  Report Type: 
  Country: None (occurrence: None)
  Receive Date: 20090514
  Receipt Date: 20090506
  Transmission Date: 20091009
  Serious: No
  Sender: FDA-Public Use
  Company Number: 2009004689

PATIENT

DRUGS (7)
  1. FENTORA [Suspect]
     Indication: NECK PAIN
     Dosage: BU
     Route: 002
  2. FENTORA [Suspect]
     Indication: STAPHYLOCOCCAL INFECTION
     Dosage: BU
     Route: 002
  3. ACTIQ [Suspect]
     Indication: NECK PAIN
     Dosage: 4800 MCG (1200 MCG, 4 IN 1
     Dates: start: 20050101
  4. ACTIQ [Suspect]
     Indication: STAPHYLOCOCCAL INFECTION
     Dosage: 4800 MCG (1200 MCG, 4 IN 1
     Dates: start: 20050101
  5. OPANA [Concomitant]
  6. KADIAN [Concomitant]
  7. METHADONE HCL [Concomitant]

REACTIONS (2)
  - DRUG PRESCRIBING ERROR [None]
  - MEDICATION ERROR [None]
